FAERS Safety Report 8943828 (Version 5)
Quarter: 2014Q2

REPORT INFORMATION
  Report Type: Report from Study
  Country: US (occurrence: US)
  Receive Date: 20121204
  Receipt Date: 20140515
  Transmission Date: 20141212
  Serious: Yes (Life-Threatening, Hospitalization, Other)
  Sender: FDA-Public Use
  Company Number: US-BRISTOL-MYERS SQUIBB COMPANY-17156217

PATIENT
  Age: 54 Year
  Sex: Male
  Weight: 92.36 kg

DRUGS (2)
  1. IPILIMUMAB [Suspect]
     Indication: MALIGNANT MELANOMA
     Dosage: LAST DOSE :25 OCT2012;920 MG
     Route: 042
     Dates: start: 20121004
  2. SOLU-CORTEF [Suspect]

REACTIONS (12)
  - Respiratory failure [Recovered/Resolved with Sequelae]
  - Renal failure acute [Recovered/Resolved with Sequelae]
  - Colitis [Recovered/Resolved with Sequelae]
  - Hyperthyroidism [Recovered/Resolved with Sequelae]
  - Convulsion [Unknown]
  - Hyperglycaemia [Unknown]
  - Pain [Unknown]
  - Sinus tachycardia [Unknown]
  - Anaemia [Unknown]
  - Left ventricular dysfunction [Recovered/Resolved with Sequelae]
  - Headache [Recovered/Resolved with Sequelae]
  - Fatigue [Recovered/Resolved with Sequelae]
